FAERS Safety Report 17046875 (Version 1)
Quarter: 2019Q4

REPORT INFORMATION
  Report Type: Spontaneous
  Country: BR (occurrence: BR)
  Receive Date: 20191119
  Receipt Date: 20191119
  Transmission Date: 20200122
  Serious: Yes (Hospitalization, Other)
  Sender: FDA-Public Use
  Company Number: BR-ACCORD-161413

PATIENT
  Age: 50 Year
  Sex: Male

DRUGS (3)
  1. YELLOW FEVER VACCINE NOS [Suspect]
     Active Substance: YELLOW FEVER VIRUS STRAIN 17D-204 LIVE ANTIGEN
     Indication: IMMUNISATION
     Dosage: VIRUSES SUBSTRAIN 17 DD OR THE EQUIVALENT DOSE IN PLAQUE-FORMING UNIT- PFU, GROWTH IN CHICKEN EMBRYO
     Dates: start: 2018, end: 2018
  2. MYCOPHENOLIC ACID. [Suspect]
     Active Substance: MYCOPHENOLIC ACID
     Indication: IMMUNOSUPPRESSANT DRUG THERAPY
     Dates: start: 2013, end: 2018
  3. TACROLIMUS. [Suspect]
     Active Substance: TACROLIMUS
     Indication: IMMUNOSUPPRESSANT DRUG THERAPY
     Dates: start: 2013, end: 2018

REACTIONS (2)
  - Accidental exposure to product [Unknown]
  - Yellow fever [Recovered/Resolved]

NARRATIVE: CASE EVENT DATE: 2018
